FAERS Safety Report 6294784-8 (Version None)
Quarter: 2009Q3

REPORT INFORMATION
  Report Type: 
  Country: None (occurrence: None)
  Receive Date: 20090803
  Receipt Date: 20090727
  Transmission Date: 20100115
  Serious: Yes (Other)
  Sender: FDA-Public Use
  Company Number: BR-PFIZER INC-2009188794

PATIENT

DRUGS (1)
  1. GEODON [Suspect]
     Route: 030

REACTIONS (1)
  - DYSTONIA [None]
